APPROVED DRUG PRODUCT: STREPTOMYCIN SULFATE
Active Ingredient: STREPTOMYCIN SULFATE
Strength: EQ 5GM BASE/VIAL **Federal Register determination that product was not discontinued or withdrawn for safety or effectiveness reasons**
Dosage Form/Route: INJECTABLE;INJECTION
Application: A060076 | Product #002
Applicant: PFIZER LABORATORIES DIV PFIZER INC
Approved: Approved Prior to Jan 1, 1982 | RLD: No | RS: No | Type: DISCN